FAERS Safety Report 7545879-X (Version None)
Quarter: 2011Q2

REPORT INFORMATION
  Report Type: 
  Country: None (occurrence: None)
  Receive Date: 20110607
  Receipt Date: 20110525
  Transmission Date: 20111010
  Serious: Yes (Other)
  Sender: FDA-Public Use
  Company Number: 2011-1589

PATIENT
  Age: 41 Year
  Sex: Female

DRUGS (1)
  1. DYSPORT [Suspect]
     Indication: SKIN WRINKLING
     Dosage: 30 UNITS (30 UNITS, SINGLE CYCLE), INTRAMUSCULAR
     Route: 030
     Dates: start: 20110512, end: 20110512

REACTIONS (7)
  - NERVOUS SYSTEM DISORDER [None]
  - ANXIETY [None]
  - NECK PAIN [None]
  - VISION BLURRED [None]
  - TRIGEMINAL NERVE DISORDER [None]
  - FACE OEDEMA [None]
  - HYPOAESTHESIA FACIAL [None]
